FAERS Safety Report 6260243-1 (Version None)
Quarter: 2009Q3

REPORT INFORMATION
  Report Type: 
  Country: None (occurrence: None)
  Receive Date: 20090708
  Receipt Date: 20090629
  Transmission Date: 20100115
  Serious: Yes (Other)
  Sender: FDA-Public Use
  Company Number: US-AMGEN-QUU353731

PATIENT
  Sex: Female

DRUGS (5)
  1. NEULASTA [Suspect]
     Indication: CHEMOTHERAPY
     Route: 065
     Dates: start: 20041201
  2. PROCRIT [Suspect]
  3. ADRIAMYCIN RDF [Concomitant]
     Dates: start: 20041201
  4. TAXOL [Concomitant]
     Dates: start: 20041201
  5. CYTOXAN [Concomitant]
     Dates: start: 20041201

REACTIONS (2)
  - ANAEMIA [None]
  - PALMAR-PLANTAR ERYTHRODYSAESTHESIA SYNDROME [None]
